FAERS Safety Report 8295200-7 (Version None)
Quarter: 2012Q2

REPORT INFORMATION
  Report Type: 
  Country: None (occurrence: None)
  Receive Date: 20120418
  Receipt Date: 20120409
  Transmission Date: 20120825
  Serious: Yes (Hospitalization, Other)
  Sender: FDA-Public Use
  Company Number: US-ASTRAZENECA-2010SE37934

PATIENT
  Age: 77 Year
  Sex: Male

DRUGS (1)
  1. CRESTOR [Suspect]
     Route: 048

REACTIONS (5)
  - CEREBRAL THROMBOSIS [None]
  - PYREXIA [None]
  - BRONCHOPNEUMONIA [None]
  - HODGKIN'S DISEASE [None]
  - ROAD TRAFFIC ACCIDENT [None]
